FAERS Safety Report 8468877-0 (Version None)
Quarter: 2012Q2

REPORT INFORMATION
  Report Type: 
  Country: None (occurrence: None)
  Receive Date: 20120626
  Receipt Date: 20120620
  Transmission Date: 20120825
  Serious: Yes (Other)
  Sender: FDA-Public Use
  Company Number: NZ-PFIZER INC-2012148766

PATIENT
  Age: 20 Year
  Sex: Female

DRUGS (3)
  1. GENOTROPIN [Suspect]
     Dosage: 0.4 MG, 1X/DAY
  2. GENOTROPIN [Suspect]
     Indication: HYPOPITUITARISM
     Dosage: UNK
  3. GENOTROPIN [Suspect]
     Dosage: UNK
     Dates: start: 20090701

REACTIONS (2)
  - WEIGHT INCREASED [None]
  - FLUID RETENTION [None]
